FAERS Safety Report 10470593 (Version 2)
Quarter: 2015Q1

REPORT INFORMATION
  Report Type: Spontaneous
  Country: FR (occurrence: FR)
  Receive Date: 20140923
  Receipt Date: 20150320
  Transmission Date: 20150720
  Serious: Yes (Hospitalization)
  Sender: FDA-Public Use
  Company Number: FR-ASTRAZENECA-2014SE70478

PATIENT
  Age: 23132 Day
  Sex: Male

DRUGS (7)
  1. INEXIUM [Suspect]
     Active Substance: ESOMEPRAZOLE
     Route: 048
     Dates: end: 20140819
  2. LEVEMIR [Suspect]
     Active Substance: INSULIN DETEMIR
     Dosage: 8 UI DAILY
     Route: 058
     Dates: start: 201403
  3. CELLCEPT [Suspect]
     Active Substance: MYCOPHENOLATE MOFETIL\MYCOPHENOLATE MOFETIL HYDROCHLORIDE
     Route: 048
  4. PROGRAF [Suspect]
     Active Substance: TACROLIMUS\TACROLIMUS ANHYDROUS
     Route: 048
     Dates: start: 201402
  5. LERCAN [Suspect]
     Active Substance: LERCANIDIPINE
     Route: 048
  6. XATRAL [Suspect]
     Active Substance: ALFUZOSIN
     Route: 058
  7. CELLCEPT [Suspect]
     Active Substance: MYCOPHENOLATE MOFETIL\MYCOPHENOLATE MOFETIL HYDROCHLORIDE
     Route: 048
     Dates: start: 201402, end: 20140819

REACTIONS (6)
  - Neutrophil morphology abnormal [Unknown]
  - Inguinal hernia [Unknown]
  - Leukopenia [Recovering/Resolving]
  - Thrombocytopenia [Recovered/Resolved]
  - Bone marrow failure [Unknown]
  - Neutropenia [Recovered/Resolved]

NARRATIVE: CASE EVENT DATE: 20140613
